FAERS Safety Report 12058905 (Version 1)
Quarter: 2016Q1

REPORT INFORMATION
  Report Type: Report from Study
  Country: US (occurrence: US)
  Receive Date: 20160209
  Receipt Date: 20160209
  Transmission Date: 20160526
  Serious: No
  Sender: FDA-Public Use
  Company Number: US-ABBVIE-15P-163-1487557-00

PATIENT
  Age: 56 Year
  Sex: Male

DRUGS (1)
  1. HUMIRA [Suspect]
     Active Substance: ADALIMUMAB
     Indication: ANKYLOSING SPONDYLITIS
     Route: 058
     Dates: start: 201509

REACTIONS (7)
  - Biopsy skin [Recovered/Resolved]
  - Face oedema [Not Recovered/Not Resolved]
  - Postoperative wound infection [Not Recovered/Not Resolved]
  - Neck pain [Not Recovered/Not Resolved]
  - Lymphadenopathy [Not Recovered/Not Resolved]
  - Headache [Not Recovered/Not Resolved]
  - Localised oedema [Not Recovered/Not Resolved]

NARRATIVE: CASE EVENT DATE: 20151007
